FAERS Safety Report 18546722 (Version 4)
Quarter: 2021Q2

REPORT INFORMATION
  Report Type: Report from Study
  Country: US (occurrence: US)
  Receive Date: 20201125
  Receipt Date: 20210520
  Transmission Date: 20210717
  Serious: No
  Sender: FDA-Public Use
  Company Number: NVSC2020US314599

PATIENT
  Sex: Male

DRUGS (1)
  1. COSENTYX [Suspect]
     Active Substance: SECUKINUMAB
     Indication: PSORIASIS
     Dosage: 300 MG, QW, ONCE WEEKLY FOR 5 WEEKS, THEN ONCE MONTHLY
     Route: 058
     Dates: start: 20201015

REACTIONS (6)
  - Fatigue [Recovered/Resolved]
  - Scar [Unknown]
  - Somnolence [Recovered/Resolved]
  - Injection site pain [Recovered/Resolved]
  - Arthralgia [Unknown]
  - Pain in extremity [Unknown]
